FAERS Safety Report 9807799 (Version 1)
Quarter: 2014Q1

REPORT INFORMATION
  Report Type: Spontaneous
  Country: US (occurrence: US)
  Receive Date: 20140110
  Receipt Date: 20140110
  Transmission Date: 20141002
  Serious: Yes (Disabling)
  Sender: FDA-Public Use
  Company Number: US-ELI_LILLY_AND_COMPANY-US201312009265

PATIENT
  Sex: Female

DRUGS (2)
  1. HUMALOG 50% LISPRO, 50% NPL [Suspect]
     Indication: TYPE 2 DIABETES MELLITUS
     Dosage: 70 U, BID
     Route: 065
     Dates: start: 2003
  2. LEVEMIR [Concomitant]

REACTIONS (1)
  - Limb injury [Not Recovered/Not Resolved]
